FAERS Safety Report 21541890 (Version 1)
Quarter: 2022Q4

REPORT INFORMATION
  Report Type: Spontaneous
  Country: KR (occurrence: KR)
  Receive Date: 20221102
  Receipt Date: 20221102
  Transmission Date: 20230112
  Serious: Yes (Other)
  Sender: FDA-Public Use
  Company Number: KR-MYLANLABS-2022M1119600

PATIENT
  Age: 77 Year
  Sex: Female

DRUGS (2)
  1. LYRICA [Suspect]
     Active Substance: PREGABALIN
     Indication: Oedema
     Dosage: 1 DOSAGE FORM, QD
     Route: 065
     Dates: start: 20200707, end: 20200727
  2. PIOGLITAZONE HYDROCHLORIDE [Suspect]
     Active Substance: PIOGLITAZONE HYDROCHLORIDE
     Indication: Oedema
     Dosage: 1 DOSAGE FORM, QD
     Route: 065
     Dates: start: 20190902, end: 20200727

REACTIONS (2)
  - Generalised oedema [Recovering/Resolving]
  - Off label use [Unknown]

NARRATIVE: CASE EVENT DATE: 20200707
